FAERS Safety Report 4492397-1 (Version None)
Quarter: 2004Q4

REPORT INFORMATION
  Report Type: 
  Country: None (occurrence: None)
  Receive Date: 20041101
  Receipt Date: 20041101
  Transmission Date: 20050328
  Serious: Yes (Life-Threatening)
  Sender: FDA-Public Use
  Company Number: None

PATIENT
  Age: 54 Year
  Sex: Female
  Weight: 86.1834 kg

DRUGS (2)
  1. VELCADE [Suspect]
     Indication: WALDENSTROM'S MACROGLOBULINAEMIA
     Dosage: (1.7 MG/M2 IV DA 1,4,8,11 Q 3 WKS
     Route: 042
     Dates: start: 20040315, end: 20040819
  2. PREDNISONE [Concomitant]

REACTIONS (7)
  - ARTHRALGIA [None]
  - CHILLS [None]
  - MYALGIA [None]
  - PAIN OF SKIN [None]
  - PLEURISY [None]
  - PYREXIA [None]
  - RASH ERYTHEMATOUS [None]
